FAERS Safety Report 25998365 (Version 1)
Quarter: 2025Q4

REPORT INFORMATION
  Report Type: Report from Study
  Country: US (occurrence: US)
  Receive Date: 20251105
  Receipt Date: 20251105
  Transmission Date: 20260118
  Serious: Yes (Other)
  Sender: TEVA
  Company Number: US-TEVA-VS-3387500

PATIENT
  Age: 21 Year
  Sex: Male

DRUGS (1)
  1. AUSTEDO XR [Suspect]
     Active Substance: DEUTETRABENAZINE
     Indication: Tardive dyskinesia
     Dosage: QAM
     Route: 048
     Dates: start: 20251018

REACTIONS (5)
  - Restlessness [Unknown]
  - Aggression [Unknown]
  - Insomnia [Unknown]
  - Rhinitis allergic [Unknown]
  - Confusional state [Unknown]

NARRATIVE: CASE EVENT DATE: 20251001
